FAERS Safety Report 19179687 (Version 1)
Quarter: 2021Q2

REPORT INFORMATION
  Report Type: Spontaneous
  Country: US (occurrence: US)
  Receive Date: 20210426
  Receipt Date: 20210426
  Transmission Date: 20210717
  Serious: No
  Sender: FDA-Public Use
  Company Number: None

PATIENT
  Age: 54 Year
  Sex: Female
  Weight: 70 kg

DRUGS (10)
  1. IMDEVIMAB. [Suspect]
     Active Substance: IMDEVIMAB
     Indication: COVID-19
     Dosage: ?          OTHER FREQUENCY:ONCE;?
     Route: 042
     Dates: start: 20210418, end: 20210418
  2. ENOXAPARIN [Concomitant]
     Active Substance: ENOXAPARIN
     Dates: start: 20210418, end: 20210420
  3. IOHEXOL [Concomitant]
     Active Substance: IOHEXOL
     Dates: start: 20210419, end: 20210419
  4. CASIRIVIMAB. [Suspect]
     Active Substance: CASIRIVIMAB
     Indication: COVID-19
     Dosage: ?          OTHER FREQUENCY:ONCE;?
     Route: 042
     Dates: start: 20210418, end: 20210418
  5. BENZONATATE. [Concomitant]
     Active Substance: BENZONATATE
     Dates: start: 20210419, end: 20210419
  6. DEXAMETHASONE. [Concomitant]
     Active Substance: DEXAMETHASONE
     Dates: start: 20210418
  7. LUNESTA [Concomitant]
     Active Substance: ESZOPICLONE
  8. ALBUTEROL. [Concomitant]
     Active Substance: ALBUTEROL
     Dates: start: 20210418, end: 20210418
  9. REMDESIVIR. [Concomitant]
     Active Substance: REMDESIVIR
     Dates: start: 20210418, end: 20210420
  10. MELATONIN [Concomitant]
     Active Substance: MELATONIN
     Dates: start: 20210419, end: 20210419

REACTIONS (4)
  - Lymphadenopathy mediastinal [None]
  - Soft tissue mass [None]
  - Full blood count abnormal [None]
  - Hilar lymphadenopathy [None]

NARRATIVE: CASE EVENT DATE: 20210418
